FAERS Safety Report 8807826 (Version 2)
Quarter: 2012Q4

REPORT INFORMATION
  Report Type: 
  Country: US (occurrence: US)
  Receive Date: 20120925
  Receipt Date: 20120928
  Transmission Date: 20130627
  Serious: No
  Sender: FDA-Public Use
  Company Number: US-GLAXOSMITHKLINE-A0988775A

PATIENT
  Age: 86 Year
  Sex: Female

DRUGS (5)
  1. ALTABAX [Suspect]
     Indication: OPEN WOUND
     Dosage: 1APP Single dose
     Route: 061
     Dates: start: 20120807
  2. SINGULAIR [Concomitant]
  3. BLOOD PRESSURE MEDICATION [Concomitant]
  4. LASIX [Concomitant]
  5. UNSPECIFIED MEDICATION [Concomitant]
     Indication: DIABETES MELLITUS

REACTIONS (1)
  - Application site pain [Recovering/Resolving]
